FAERS Safety Report 18317662 (Version 1)
Quarter: 2020Q3

REPORT INFORMATION
  Report Type: Spontaneous
  Country: IT (occurrence: IT)
  Receive Date: 20200928
  Receipt Date: 20200928
  Transmission Date: 20201103
  Serious: Yes (Other)
  Sender: FDA-Public Use
  Company Number: IT-ROCHE-2677853

PATIENT
  Sex: Male

DRUGS (2)
  1. RIBAVIRIN. [Suspect]
     Active Substance: RIBAVIRIN
     Indication: HEPATITIS C
     Dosage: IN AUG/2019: DATE AND TIME OF LAST ADMINISTRATION
     Route: 065
     Dates: start: 201906
  2. EPCLUSA [Suspect]
     Active Substance: SOFOSBUVIR\VELPATASVIR
     Indication: HEPATITIS C
     Dosage: IN AUG/2019: DATE AND TIME OF LAST ADMINISTRATION
     Route: 065
     Dates: start: 201906

REACTIONS (1)
  - Ascites [Unknown]
